FAERS Safety Report 9546912 (Version 1)
Quarter: 2013Q3

REPORT INFORMATION
  Report Type: Other
  Country: DE (occurrence: DE)
  Receive Date: 20130924
  Receipt Date: 20130924
  Transmission Date: 20140515
  Serious: Yes (Other)
  Sender: FDA-Public Use
  Company Number: DE-LUPIN PHARMACEUTICALS INC.-E2B_00001289

PATIENT
  Sex: Male
  Weight: 3.25 kg

DRUGS (7)
  1. LAMOTRIGIN [Suspect]
     Indication: DEPRESSION
     Route: 064
     Dates: start: 20090619, end: 20100316
  2. LAMOTRIGIN [Suspect]
     Indication: OBSESSIVE-COMPULSIVE DISORDER
  3. TREVILOR [Suspect]
     Indication: DEPRESSION
     Route: 064
     Dates: start: 20090619, end: 20100316
  4. TREVILOR [Suspect]
     Indication: OBSESSIVE-COMPULSIVE DISORDER
  5. PROMETHAZIN NEURAXPHARM [Suspect]
     Indication: OBSESSIVE-COMPULSIVE DISORDER
     Route: 064
     Dates: start: 20090619, end: 20100316
  6. L-THYROXIN 50 [Concomitant]
     Indication: HYPOTHYROIDISM
     Route: 064
     Dates: start: 20090619, end: 20100316
  7. FOLIO FORTE [Concomitant]
     Indication: PROPHYLAXIS OF NEURAL TUBE DEFECT
     Route: 064
     Dates: start: 20090701

REACTIONS (4)
  - Neonatal respiratory distress syndrome [Recovered/Resolved]
  - Drug withdrawal syndrome neonatal [Recovered/Resolved]
  - Bradycardia neonatal [Recovered/Resolved]
  - Foetal exposure during pregnancy [Recovered/Resolved]
